FAERS Safety Report 5366841-1 (Version None)
Quarter: 2007Q2

REPORT INFORMATION
  Report Type: 
  Country: None (occurrence: None)
  Receive Date: 20070622
  Receipt Date: 20070105
  Transmission Date: 20071010
  Serious: No
  Sender: FDA-Public Use
  Company Number: US-ASTRAZENECA-2007UW00293

PATIENT
  Age: 78 Year
  Sex: Male
  Weight: 80.7 kg

DRUGS (4)
  1. RHINOCORT [Suspect]
     Indication: NASAL CONGESTION
     Dosage: PER NOSTRIL
     Route: 045
  2. SALINE NASAL SPRAY [Concomitant]
  3. MULTIVITAMIN [Concomitant]
  4. AMBIEN [Concomitant]

REACTIONS (3)
  - COUGH [None]
  - DIZZINESS [None]
  - EPISTAXIS [None]
